FAERS Safety Report 10659527 (Version 2)
Quarter: 2015Q2

REPORT INFORMATION
  Report Type: Report from Study
  Country: FR (occurrence: FR)
  Receive Date: 20141217
  Receipt Date: 20150408
  Transmission Date: 20150821
  Serious: Yes (Hospitalization)
  Sender: FDA-Public Use
  Company Number: FR-GILEAD-2014-0126185

PATIENT
  Age: 56 Year
  Sex: Female
  Weight: 72 kg

DRUGS (6)
  1. DACLATASVIR [Suspect]
     Active Substance: DACLATASVIR
     Indication: HEPATITIS C
     Dosage: 60 MG, QD
     Route: 065
     Dates: start: 20140417, end: 20141002
  2. LASILIX                            /00032601/ [Concomitant]
     Active Substance: FUROSEMIDE
     Indication: ASCITES
     Dosage: 60 MG, QD
     Dates: start: 2013
  3. EUPANTOL [Concomitant]
     Active Substance: PANTOPRAZOLE SODIUM
     Indication: GASTRIC DISORDER
     Dosage: 20 MG, UNK
     Dates: start: 2013
  4. COPEGUS [Suspect]
     Active Substance: RIBAVIRIN
     Indication: HEPATITIS C
     Dosage: 800 MG, UNK
     Route: 065
     Dates: start: 20140417, end: 20141002
  5. ALDACTONE [Concomitant]
     Active Substance: SPIRONOLACTONE
     Indication: ASCITES
     Dosage: 75 MG, UNK
     Dates: start: 2013, end: 20140425
  6. SOFOSBUVIR [Suspect]
     Active Substance: SOFOSBUVIR
     Indication: HEPATITIS C
     Dosage: 400 MG, UNK
     Route: 065
     Dates: start: 20140417, end: 20141002

REACTIONS (2)
  - Asthenia [Not Recovered/Not Resolved]
  - Pain in extremity [Not Recovered/Not Resolved]

NARRATIVE: CASE EVENT DATE: 20140726
